FAERS Safety Report 9508717 (Version 1)
Quarter: 2013Q3

REPORT INFORMATION
  Report Type: Spontaneous
  Country: JP (occurrence: JP)
  Receive Date: 20130909
  Receipt Date: 20130909
  Transmission Date: 20140515
  Serious: Yes (Other)
  Sender: FDA-Public Use
  Company Number: JP-GLAXOSMITHKLINE-B0920671A

PATIENT
  Age: 6 Decade
  Sex: Female

DRUGS (2)
  1. VOTRIENT [Suspect]
     Indication: PRODUCT USED FOR UNKNOWN INDICATION
     Route: 048
  2. VOTRIENT [Suspect]
     Indication: PRODUCT USED FOR UNKNOWN INDICATION
     Route: 048

REACTIONS (8)
  - Pneumonia [Unknown]
  - Nausea [Unknown]
  - Decreased appetite [Unknown]
  - Vomiting [Unknown]
  - Constipation [Unknown]
  - Haematuria [Unknown]
  - Nausea [Unknown]
  - Fatigue [Unknown]
